FAERS Safety Report 24641351 (Version 3)
Quarter: 2024Q4

REPORT INFORMATION
  Report Type: Report from Study
  Country: GB (occurrence: GB)
  Receive Date: 20241120
  Receipt Date: 20241202
  Transmission Date: 20250114
  Serious: Yes (Congenital Anomaly, Other)
  Sender: MYLAN
  Company Number: GB-MYLANLABS-2024M1102852

PATIENT

DRUGS (1)
  1. EMTRICITABINE\TENOFOVIR DISOPROXIL [Suspect]
     Active Substance: EMTRICITABINE\TENOFOVIR DISOPROXIL
     Indication: Prophylaxis against HIV infection
     Dosage: 1 DOSAGE FORM, QD (1 TABLET/CAPSULE, DAILY)
     Route: 064
     Dates: start: 20240912

REACTIONS (3)
  - Fallot^s tetralogy [Unknown]
  - Ultrasound foetal abnormal [Unknown]
  - Foetal exposure during pregnancy [Unknown]

NARRATIVE: CASE EVENT DATE: 20240927
